FAERS Safety Report 5543020-6 (Version None)
Quarter: 2007Q4

REPORT INFORMATION
  Report Type: 
  Country: None (occurrence: None)
  Receive Date: 20071123
  Receipt Date: 20070116
  Transmission Date: 20080405
  Serious: Yes (Other)
  Sender: FDA-Public Use
  Company Number: US-JNJFOC-20070104014

PATIENT
  Age: 73 Year
  Sex: 0

DRUGS (6)
  1. LEVAQUIN [Suspect]
     Indication: DRUG USE FOR UNKNOWN INDICATION
     Dosage: 750 MG, 1 IN 1 DAY, ORAL
     Route: 048
     Dates: start: 20070101, end: 20070101
  2. ADVAIR DISKUS 100/50 [Concomitant]
  3. TRICOR [Concomitant]
  4. CRESTOR [Concomitant]
  5. SPIRIVA (ANTISHOLINERGIC AGENTS) [Concomitant]
  6. PREDNISONE [Concomitant]

REACTIONS (3)
  - CONVULSION [None]
  - HALLUCINATION [None]
  - VISUAL DISTURBANCE [None]
